FAERS Safety Report 4494226-9 (Version None)
Quarter: 2004Q4

REPORT INFORMATION
  Report Type: 
  Country: None (occurrence: None)
  Receive Date: 20041102
  Receipt Date: 20041019
  Transmission Date: 20050328
  Serious: Yes (Life-Threatening, Hospitalization)
  Sender: FDA-Public Use
  Company Number: A01200405217

PATIENT
  Age: 70 Year
  Sex: Male

DRUGS (6)
  1. CLOPIDOGREL BISULFATE [Suspect]
     Indication: CARDIAC DISORDER
     Dosage: 75 MG OD ORAL
     Route: 048
     Dates: start: 20030101, end: 20040806
  2. CARVEDILOL [Concomitant]
  3. METFORMIN (METFORMIN HYDROCHLORIDE) [Concomitant]
  4. METOHEXAL (METOPROLOL TARTRATE) [Concomitant]
  5. MICARDIS PLUS (TELMISARTAN 40 MG + HYDROCHLOROTHIAZIDE 12.5 MG) [Concomitant]
  6. PRAVASTATIN SODIUM [Concomitant]

REACTIONS (10)
  - ABDOMINAL DISCOMFORT [None]
  - ANAEMIA [None]
  - BLOOD PRESSURE INCREASED [None]
  - CIRCULATORY COLLAPSE [None]
  - COLONIC POLYP [None]
  - DIVERTICULUM [None]
  - GASTROINTESTINAL HAEMORRHAGE [None]
  - MALLORY-WEISS SYNDROME [None]
  - MELAENA [None]
  - VOMITING [None]
